FAERS Safety Report 4375833-0 (Version None)
Quarter: 2004Q2

REPORT INFORMATION
  Report Type: 
  Country: None (occurrence: None)
  Receive Date: 20040607
  Receipt Date: 20040524
  Transmission Date: 20050107
  Serious: Yes (Hospitalization)
  Sender: FDA-Public Use
  Company Number: S04-BEL-02085-02

PATIENT
  Sex: Male
  Weight: 3.6 kg

DRUGS (1)
  1. CITALOPRAM HYDROBROMIDE [Suspect]
     Dosage: 20 MG QD TRANSPLACENTAL
     Route: 064
     Dates: start: 20010301, end: 20040325

REACTIONS (10)
  - APGAR SCORE LOW [None]
  - BLOODY DISCHARGE [None]
  - DRUG EXPOSURE DURING PREGNANCY [None]
  - DYSPNOEA [None]
  - HYPERTONIA NEONATAL [None]
  - HYPOPNOEA [None]
  - IRRITABILITY [None]
  - NEONATAL APNOEIC ATTACK [None]
  - NEONATAL DISORDER [None]
  - TREMOR NEONATAL [None]
